FAERS Safety Report 11319683 (Version 11)
Quarter: 2018Q1

REPORT INFORMATION
  Report Type: Report from Study
  Country: US (occurrence: US)
  Receive Date: 20150729
  Receipt Date: 20180301
  Transmission Date: 20180508
  Serious: No
  Sender: FDA-Public Use
  Company Number: PHHY2014US070160

PATIENT
  Age: 36 Year
  Sex: Female

DRUGS (3)
  1. METHYLPHENIDATE. [Concomitant]
     Active Substance: METHYLPHENIDATE
     Indication: FATIGUE
     Dosage: UNK
     Route: 065
     Dates: start: 20180108
  2. SOLU-MEDROL [Concomitant]
     Active Substance: METHYLPREDNISOLONE SODIUM SUCCINATE
     Indication: OPTIC NERVE DISORDER
     Dosage: UNK
     Route: 065
     Dates: start: 20120713, end: 20120715
  3. GILENYA [Suspect]
     Active Substance: FINGOLIMOD HYDROCHLORIDE
     Indication: MULTIPLE SCLEROSIS
     Dosage: QD
     Route: 048

REACTIONS (12)
  - Blood glucose increased [Unknown]
  - Paraesthesia [Recovered/Resolved]
  - Lymphocyte count decreased [Unknown]
  - Back pain [Recovered/Resolved]
  - Migraine [Recovered/Resolved]
  - Hypoaesthesia [Recovered/Resolved]
  - Weight decreased [Recovered/Resolved]
  - Blood albumin increased [Unknown]
  - Abdominal pain upper [Recovered/Resolved]
  - Memory impairment [Unknown]
  - Insomnia [Unknown]
  - Urinary tract infection [Recovered/Resolved]

NARRATIVE: CASE EVENT DATE: 20120713
